FAERS Safety Report 12853244 (Version 1)
Quarter: 2016Q4

REPORT INFORMATION
  Report Type: Spontaneous
  Country: US (occurrence: US)
  Receive Date: 20161014
  Receipt Date: 20161014
  Transmission Date: 20170207
  Serious: No
  Sender: FDA-Public Use
  Company Number: None

PATIENT

DRUGS (1)
  1. QUAD4 [Suspect]
     Active Substance: ALPROSTADIL\ATROPINE\PAPAVERINE\PHENTOLAMINE
     Dosage: QUAD 4 (5 ML) (PAP) - QUANITY REMAINING - 1 VIAL 3/4 FULL

REACTIONS (1)
  - Penile haemorrhage [None]
